FAERS Safety Report 12633931 (Version 2)
Quarter: 2016Q3

REPORT INFORMATION
  Report Type: Other
  Country: DK (occurrence: DK)
  Receive Date: 20160809
  Receipt Date: 20160809
  Transmission Date: 20161109
  Serious: Yes (Hospitalization, Other)
  Sender: FDA-Public Use
  Company Number: DK-EMD SERONO-8099174

PATIENT
  Age: 28 Year
  Sex: Female

DRUGS (1)
  1. CHORIOGONADOTROPIN ALFA [Suspect]
     Active Substance: CHORIOGONADOTROPIN ALFA
     Indication: WEIGHT DECREASED
     Route: 030

REACTIONS (7)
  - Intentional product misuse [Unknown]
  - Pregnancy on contraceptive [Unknown]
  - Maternal exposure during pregnancy [Recovered/Resolved]
  - Hepatic vascular thrombosis [Unknown]
  - Splenomegaly [Unknown]
  - Mesenteric vein thrombosis [Unknown]
  - Off label use [Unknown]
